FAERS Safety Report 13701804 (Version 1)
Quarter: 2017Q2

REPORT INFORMATION
  Report Type: Spontaneous
  Country: US (occurrence: US)
  Receive Date: 20170629
  Receipt Date: 20170629
  Transmission Date: 20170830
  Serious: Yes (Other)
  Sender: FDA-Public Use
  Company Number: None

PATIENT
  Age: 71 Year
  Sex: Female
  Weight: 65.83 kg

DRUGS (10)
  1. ALENDRONATE SODIUM TABLETS, USP [Suspect]
     Active Substance: ALENDRONATE SODIUM
     Indication: OSTEOARTHRITIS
     Route: 048
     Dates: start: 20170412, end: 20170621
  2. ADVAIR HFA [Concomitant]
     Active Substance: FLUTICASONE PROPIONATE\SALMETEROL XINAFOATE
  3. FOLIC ACID. [Concomitant]
     Active Substance: FOLIC ACID
  4. MULTIVITAMIN [Concomitant]
     Active Substance: VITAMINS
  5. CALCIUM + D [Concomitant]
     Active Substance: CALCIUM\VITAMIN D
  6. VITAMIN C [Concomitant]
     Active Substance: ASCORBIC ACID
  7. LIPITOR [Concomitant]
     Active Substance: ATORVASTATIN CALCIUM
  8. OCUVITE [Concomitant]
     Active Substance: VITAMINS
  9. ASPIRIN (LOW DOSE) [Concomitant]
  10. ALENDRONATE SODIUM TABLETS, USP [Suspect]
     Active Substance: ALENDRONATE SODIUM
     Indication: OSTEOPENIA
     Route: 048
     Dates: start: 20170412, end: 20170621

REACTIONS (4)
  - Vomiting [None]
  - Nausea [None]
  - Deafness unilateral [None]
  - Dizziness [None]

NARRATIVE: CASE EVENT DATE: 20170412
